FAERS Safety Report 9315388 (Version 2)
Quarter: 2013Q4

REPORT INFORMATION
  Report Type: Report from Study
  Country: FR (occurrence: FR)
  Receive Date: 20130529
  Receipt Date: 20131211
  Transmission Date: 20140711
  Serious: Yes (Disabling, Other)
  Sender: FDA-Public Use
  Company Number: FR-TEVA-399888USA

PATIENT
  Age: 71 Year
  Sex: Male

DRUGS (20)
  1. BENDAMUSTINE [Suspect]
     Indication: MANTLE CELL LYMPHOMA
     Dosage: REGIMEN #1
     Route: 041
     Dates: start: 20130107
  2. BENDAMUSTINE [Suspect]
     Dosage: REGIMEN #2
     Route: 041
     Dates: start: 201302
  3. BENDAMUSTINE [Suspect]
     Dosage: REGIMEN#3
     Route: 041
     Dates: start: 20130305
  4. VELCADE [Suspect]
     Indication: MANTLE CELL LYMPHOMA
     Dosage: REGIMEN #1
     Route: 058
     Dates: start: 20130107
  5. VELCADE [Suspect]
     Dosage: REGIMEN #2
     Route: 058
     Dates: start: 201302
  6. VELCADE [Suspect]
     Dosage: REGIMEN# 3
     Route: 058
     Dates: start: 20130305
  7. RITUXIMAB [Suspect]
     Indication: MANTLE CELL LYMPHOMA
     Dosage: REGIMEN #1
     Route: 042
     Dates: start: 20130107
  8. RITUXIMAB [Suspect]
     Dosage: REGIMEN #2
     Route: 042
     Dates: start: 201302
  9. RITUXIMAB [Suspect]
     Dosage: REGIMEN#3
     Route: 042
     Dates: start: 20130305
  10. DEXAMETHASONE [Suspect]
     Indication: MANTLE CELL LYMPHOMA
     Dosage: REGIMEN #1
     Route: 042
     Dates: start: 20130108
  11. DEXAMETHASONE [Suspect]
     Dosage: REGIMEN #2
     Route: 042
     Dates: start: 201302
  12. DEXAMETHASONE [Suspect]
     Dosage: REGIMEN#3
     Route: 042
     Dates: start: 20130306
  13. INEGY [Concomitant]
     Indication: HYPERCHOLESTEROLAEMIA
     Route: 048
  14. ZELITREX [Concomitant]
     Indication: ANTIVIRAL PROPHYLAXIS
     Dosage: 1000 MILLIGRAM DAILY;
     Route: 048
  15. KARDEGIC [Concomitant]
     Indication: PERIPHERAL ARTERIAL OCCLUSIVE DISEASE
     Route: 048
  16. RAMIPRIL [Concomitant]
     Indication: HYPERTENSION
     Route: 048
  17. BACTRIM [Concomitant]
     Indication: PRODUCT USED FOR UNKNOWN INDICATION
     Dosage: 3 DOSAGE FORMS DAILY;
     Route: 048
  18. SPECIAFOLDINE [Concomitant]
     Indication: INFECTION PROPHYLAXIS
     Route: 048
  19. OMEPRAZOLE [Concomitant]
     Indication: PROPHYLAXIS AGAINST GASTROINTESTINAL ULCER
     Dosage: 20 MILLIGRAM DAILY;
     Route: 048
  20. AMLODIPINE [Concomitant]
     Indication: HYPERTENSION
     Dosage: 5 MILLIGRAM DAILY;
     Route: 048

REACTIONS (1)
  - Peripheral sensory neuropathy [Recovered/Resolved]
